FAERS Safety Report 13964021 (Version 1)
Quarter: 2017Q3

REPORT INFORMATION
  Report Type: Spontaneous
  Country: US (occurrence: US)
  Receive Date: 20170913
  Receipt Date: 20170913
  Transmission Date: 20171128
  Serious: No
  Sender: FDA-Public Use
  Company Number: US-BAYER-2017-172781

PATIENT
  Sex: Female

DRUGS (1)
  1. MIRENA [Suspect]
     Active Substance: LEVONORGESTREL
     Dosage: 20 MCG/24HR, CONT
     Route: 015
     Dates: start: 201708, end: 201708

REACTIONS (3)
  - Product contamination [Unknown]
  - Complication of device insertion [Unknown]
  - Multiple use of single-use product [None]

NARRATIVE: CASE EVENT DATE: 201708
